FAERS Safety Report 21526836 (Version 2)
Quarter: 2022Q4

REPORT INFORMATION
  Report Type: Report from Study
  Country: US (occurrence: US)
  Receive Date: 20221031
  Receipt Date: 20221202
  Transmission Date: 20230113
  Serious: Yes (Hospitalization, Other)
  Sender: FDA-Public Use
  Company Number: US-BRISTOL-MYERS SQUIBB COMPANY-2022-125594

PATIENT
  Age: 66 Year
  Sex: Male
  Weight: 87.2 kg

DRUGS (4)
  1. NIVOLUMAB [Suspect]
     Active Substance: NIVOLUMAB
     Indication: Penile cancer
     Route: 042
     Dates: start: 20200227, end: 20200721
  2. IPILIMUMAB [Suspect]
     Active Substance: IPILIMUMAB
     Indication: Penile cancer
     Route: 042
     Dates: start: 20200227
  3. CABOZANTINIB [Suspect]
     Active Substance: CABOZANTINIB
     Indication: Penile cancer
     Route: 048
     Dates: start: 20200227, end: 202008
  4. CABOZANTINIB [Suspect]
     Active Substance: CABOZANTINIB
     Route: 048
     Dates: start: 202008, end: 20200827

REACTIONS (2)
  - Spinal fracture [Recovering/Resolving]
  - Dehydration [Recovering/Resolving]

NARRATIVE: CASE EVENT DATE: 20200808
